FAERS Safety Report 15136687 (Version 1)
Quarter: 2018Q3

REPORT INFORMATION
  Report Type: Spontaneous
  Country: US (occurrence: US)
  Receive Date: 20180618
  Receipt Date: 20180618
  Transmission Date: 20181010
  Serious: Yes (Hospitalization)
  Sender: FDA-Public Use
  Company Number: None

PATIENT
  Age: 40 Year
  Sex: Female
  Weight: 42.3 kg

DRUGS (2)
  1. ESTRACE 2 MG PO [Concomitant]
     Dates: start: 20180504
  2. PROGESTERONE INJECTION USP [Suspect]
     Active Substance: PROGESTERONE
     Indication: IN VITRO FERTILISATION
     Route: 030
     Dates: start: 20180519, end: 20180613

REACTIONS (2)
  - Cellulitis [None]
  - Abscess limb [None]

NARRATIVE: CASE EVENT DATE: 20180613
